FAERS Safety Report 8620472-6 (Version None)
Quarter: 2012Q3

REPORT INFORMATION
  Report Type: 
  Country: None (occurrence: None)
  Receive Date: 20120824
  Receipt Date: 20120813
  Transmission Date: 20120928
  Serious: Yes (Other)
  Sender: FDA-Public Use
  Company Number: US-VERTEX PHARMACEUTICAL INC.-AE-2012-010916

PATIENT
  Sex: Female
  Weight: 45 kg

DRUGS (13)
  1. PEGASYS [Suspect]
     Indication: HEPATITIS C
     Dosage: UNK
     Dates: start: 20120605
  2. RIBAVIRIN [Suspect]
     Dosage: 200 MG, QD
     Dates: start: 20120808
  3. VITAMIN E BAR [Concomitant]
  4. HYDROXYZINE HCL [Concomitant]
     Dosage: 25 MG, UNK
     Route: 048
  5. ESCITALOPRAM [Concomitant]
     Dosage: 10 MG, UNK
     Route: 048
  6. FEMRING MIS [Concomitant]
     Dosage: UNK
  7. RIBAVIRIN [Suspect]
     Dosage: 600 MG, UNK
     Route: 048
     Dates: start: 20120605
  8. PEGASYS [Suspect]
     Dosage: 90 A?G/KG, UNK
  9. VITAMIN D [Concomitant]
     Dosage: 1000 IU, UNK
  10. PROGESTERONE [Concomitant]
  11. LEXAPRO [Concomitant]
  12. VX-950 [Suspect]
     Indication: HEPATITIS C
     Dosage: 750 MG, TID
     Route: 048
     Dates: start: 20120605
  13. ASCORBIC ACID [Concomitant]
     Dosage: 500 MG, UNK
     Route: 048

REACTIONS (7)
  - PLATELET COUNT DECREASED [None]
  - SYNCOPE [None]
  - ANAEMIA [None]
  - DIZZINESS [None]
  - ASTHENIA [None]
  - RASH [None]
  - PERIORBITAL OEDEMA [None]
